FAERS Safety Report 18520507 (Version 3)
Quarter: 2021Q1

REPORT INFORMATION
  Report Type: Spontaneous
  Country: US (occurrence: US)
  Receive Date: 20201118
  Receipt Date: 20210130
  Transmission Date: 20210419
  Serious: Yes (Hospitalization, Other)
  Sender: FDA-Public Use
  Company Number: US-ROCHE-2716008

PATIENT
  Age: 56 Year
  Sex: Male
  Weight: 106.3 kg

DRUGS (8)
  1. ZOCOR [Concomitant]
     Active Substance: SIMVASTATIN
     Indication: HYPERCHOLESTEROLAEMIA
     Route: 048
  2. XELODA [Suspect]
     Active Substance: CAPECITABINE
     Indication: COLORECTAL CANCER
     Route: 048
     Dates: start: 20200331
  3. IMODIUM [Concomitant]
     Active Substance: LOPERAMIDE HYDROCHLORIDE
     Indication: DIARRHOEA
     Route: 048
     Dates: start: 20200816
  4. NORVASC [Concomitant]
     Active Substance: AMLODIPINE BESYLATE
     Indication: HYPERTENSION
     Route: 048
  5. COREG [Concomitant]
     Active Substance: CARVEDILOL
     Indication: HYPERTENSION
  6. DEXAMETHASONE. [Concomitant]
     Active Substance: DEXAMETHASONE
     Indication: OEDEMA
     Route: 048
     Dates: start: 20201016, end: 20201115
  7. XELODA [Suspect]
     Active Substance: CAPECITABINE
     Dosage: 500 MG 4 TABLETS IN THE MORNING AND 4 TABLETS IN THE EVENING. TWICE A DAY X 14 DAYS OF 21 DAYS CYCLE
     Route: 048
     Dates: start: 20200331
  8. DEXAMETHASONE. [Concomitant]
     Active Substance: DEXAMETHASONE
     Indication: INTRACRANIAL MASS

REACTIONS (7)
  - Metastases to central nervous system [Unknown]
  - Fatigue [Unknown]
  - Neuropathy peripheral [Unknown]
  - Disorientation [Recovered/Resolved]
  - Mood swings [Unknown]
  - Hyperglycaemia [Recovered/Resolved]
  - Dizziness [Unknown]

NARRATIVE: CASE EVENT DATE: 20201103
